FAERS Safety Report 9071040 (Version 1)
Quarter: 2013Q1

REPORT INFORMATION
  Report Type: Report from Study
  Country: US (occurrence: US)
  Receive Date: 20130129
  Receipt Date: 20130129
  Transmission Date: 20140127
  Serious: No
  Sender: FDA-Public Use
  Company Number: US-ABBOTT-12P-163-0930117-00

PATIENT
  Age: 26 None
  Sex: Female
  Weight: 61.29 kg

DRUGS (5)
  1. HUMIRA 40 MG/0.8 ML PEN [Suspect]
     Indication: CROHN^S DISEASE
     Dosage: LOADING DOSE-CROHN^S STARTER KIT
     Route: 058
     Dates: start: 20120419, end: 20120419
  2. PREDNISONE [Concomitant]
     Indication: CROHN^S DISEASE
  3. PROBIOTIC [Concomitant]
     Indication: CROHN^S DISEASE
  4. MULTIVITAMIN [Concomitant]
     Indication: VITAMIN SUPPLEMENTATION
  5. IRON [Concomitant]
     Indication: CROHN^S DISEASE

REACTIONS (3)
  - Vision blurred [Recovered/Resolved]
  - Headache [Recovered/Resolved]
  - Migraine with aura [Recovered/Resolved]
